FAERS Safety Report 4584507-2 (Version None)
Quarter: 2005Q1

REPORT INFORMATION
  Report Type: 
  Country: None (occurrence: None)
  Receive Date: 20050125
  Receipt Date: 20041108
  Transmission Date: 20050727
  Serious: No
  Sender: FDA-Public Use
  Company Number: USA041183439

PATIENT
  Age: 76 Year
  Sex: Female

DRUGS (2)
  1. FORTEO [Suspect]
     Indication: OSTEOPOROSIS
     Dates: start: 20041107
  2. TYLENOL PM [Concomitant]

REACTIONS (3)
  - INITIAL INSOMNIA [None]
  - INSOMNIA [None]
  - PSYCHOMOTOR HYPERACTIVITY [None]
